FAERS Safety Report 12918742 (Version 2)
Quarter: 2016Q4

REPORT INFORMATION
  Report Type: Report from Study
  Country: MX (occurrence: MX)
  Receive Date: 20161107
  Receipt Date: 20161114
  Transmission Date: 20170207
  Serious: Yes (Other)
  Sender: FDA-Public Use
  Company Number: PHHY2014MX012932

PATIENT
  Age: 58 Year
  Sex: Male
  Weight: 50 kg

DRUGS (7)
  1. TEGRETOL [Suspect]
     Active Substance: CARBAMAZEPINE
     Dosage: 1 DF (400 MG), QD
     Route: 048
     Dates: end: 201311
  2. CARBAMAZEPINE. [Suspect]
     Active Substance: CARBAMAZEPINE
     Dosage: UNK
     Route: 065
     Dates: start: 201311
  3. CARBAMAZEPINE. [Suspect]
     Active Substance: CARBAMAZEPINE
     Indication: EPILEPSY
     Dosage: 400 MG, UNK
     Route: 065
  4. TEGRETOL [Suspect]
     Active Substance: CARBAMAZEPINE
     Indication: EPILEPSY
     Dosage: 1 DF (400 MG), QD
     Route: 048
     Dates: start: 201205, end: 201305
  5. TEGRETOL [Suspect]
     Active Substance: CARBAMAZEPINE
     Dosage: 1 DF (400 MG), QD
     Route: 048
  6. CARBAMAZEPINE. [Suspect]
     Active Substance: CARBAMAZEPINE
     Dosage: 200 MG, UNK
     Route: 065
  7. LEPTOPSIQUE [Concomitant]
     Indication: EPILEPSY
     Dosage: 0.5 DF, QD
     Route: 048
     Dates: start: 2012

REACTIONS (9)
  - Seizure [Recovered/Resolved]
  - Mood altered [Recovered/Resolved]
  - Diarrhoea [Recovered/Resolved]
  - Depression [Not Recovered/Not Resolved]
  - Fear [Unknown]
  - Malaise [Recovered/Resolved]
  - Wound [Recovered/Resolved]
  - Seizure [Recovered/Resolved]
  - Balance disorder [Recovered/Resolved]

NARRATIVE: CASE EVENT DATE: 201305
